FAERS Safety Report 14060622 (Version 1)
Quarter: 2017Q4

REPORT INFORMATION
  Report Type: Spontaneous
  Country: US (occurrence: US)
  Receive Date: 20171007
  Receipt Date: 20171007
  Transmission Date: 20180321
  Serious: No
  Sender: FDA-Public Use
  Company Number: US-009507513-1710USA000741

PATIENT
  Sex: Male

DRUGS (6)
  1. ZEPATIER [Suspect]
     Active Substance: ELBASVIR\GRAZOPREVIR
     Indication: HEPATITIS C
     Dosage: DAILY DOSE 50-100 MG, 1 TABLET BY MOUTH EVERY DAY
     Route: 048
     Dates: start: 201707
  2. LAMICTAL [Concomitant]
     Active Substance: LAMOTRIGINE
  3. PRILOSEC [Concomitant]
     Active Substance: OMEPRAZOLE MAGNESIUM
  4. MOTRIN [Concomitant]
     Active Substance: IBUPROFEN
  5. ADDERALL [Concomitant]
     Active Substance: AMPHETAMINE ASPARTATE\AMPHETAMINE SULFATE\DEXTROAMPHETAMINE SACCHARATE\DEXTROAMPHETAMINE SULFATE
  6. MILK THISTLE [Concomitant]
     Active Substance: DIETARY SUPPLEMENT\HERBALS\MILK THISTLE

REACTIONS (3)
  - Muscle disorder [Unknown]
  - Disturbance in attention [Unknown]
  - Amnesia [Unknown]

NARRATIVE: CASE EVENT DATE: 2017
